FAERS Safety Report 9352384 (Version 1)
Quarter: 2013Q2

REPORT INFORMATION
  Report Type: Spontaneous
  Country: US (occurrence: US)
  Receive Date: 20130617
  Receipt Date: 20130617
  Transmission Date: 20140414
  Serious: Yes (Hospitalization)
  Sender: FDA-Public Use
  Company Number: US-ELI_LILLY_AND_COMPANY-US201306003015

PATIENT
  Sex: Female

DRUGS (6)
  1. HUMULIN NPH [Suspect]
     Indication: TYPE 2 DIABETES MELLITUS
     Dosage: 15 U, EACH EVENING
     Dates: start: 2008
  2. SYNTHROID [Concomitant]
  3. EXELON [Concomitant]
  4. DEMADEX [Concomitant]
  5. VYTORIN [Concomitant]
  6. NYSTATIN [Concomitant]

REACTIONS (9)
  - Dehydration [Unknown]
  - Dehydration [Unknown]
  - Dehydration [Unknown]
  - Blood glucose increased [Unknown]
  - Medication error [Unknown]
  - Urinary tract infection [Unknown]
  - Cystitis [Unknown]
  - Drug ineffective [Unknown]
  - Eating disorder [Unknown]
